FAERS Safety Report 15123210 (Version 2)
Quarter: 2018Q3

REPORT INFORMATION
  Report Type: Spontaneous
  Country: US (occurrence: US)
  Receive Date: 20180709
  Receipt Date: 20180730
  Transmission Date: 20181010
  Serious: No
  Sender: FDA-Public Use
  Company Number: US-PFIZER INC-2018276512

PATIENT
  Sex: Male

DRUGS (1)
  1. LYRICA [Suspect]
     Active Substance: PREGABALIN
     Dosage: UNK, 2X/DAY  (ONE IN MORNING ONE AT NIGHT)

REACTIONS (3)
  - Fibromyalgia [Unknown]
  - Neuralgia [Unknown]
  - Road traffic accident [Unknown]
